FAERS Safety Report 25198065 (Version 1)
Quarter: 2025Q2

REPORT INFORMATION
  Report Type: Spontaneous
  Country: US (occurrence: US)
  Receive Date: 20250415
  Receipt Date: 20250415
  Transmission Date: 20250717
  Serious: No
  Sender: CHIESI
  Company Number: US-CHIESI-2025CHF01035

PATIENT
  Age: 2 Year
  Sex: Male
  Weight: 11.19 kg

DRUGS (3)
  1. FILSUVEZ [Suspect]
     Active Substance: BIRCH TRITERPENES
     Indication: Epidermolysis bullosa
     Route: 061
     Dates: start: 20250206
  2. SILICON [Concomitant]
     Active Substance: SILICON
     Indication: Epidermolysis bullosa
  3. SILICON [Concomitant]
     Active Substance: SILICON
     Indication: Epidermolysis bullosa

REACTIONS (2)
  - Wrong technique in product usage process [Not Recovered/Not Resolved]
  - No adverse event [Recovered/Resolved]

NARRATIVE: CASE EVENT DATE: 20250206
